FAERS Safety Report 9274912 (Version 1)
Quarter: 2013Q2

REPORT INFORMATION
  Report Type: Spontaneous
  Country: GB (occurrence: None)
  Receive Date: 20130429
  Receipt Date: 20130429
  Transmission Date: 20140414
  Serious: Yes (Other)
  Sender: FDA-Public Use
  Company Number: SYM-2013-03040

PATIENT
  Age: 37 Year
  Sex: Female

DRUGS (1)
  1. METRONIDAZOLE [Suspect]
     Indication: ABSCESS ORAL
     Route: 048
     Dates: start: 20080607, end: 20080614

REACTIONS (3)
  - Syncope [None]
  - Rash [None]
  - Nausea [None]
